FAERS Safety Report 4973359-4 (Version None)
Quarter: 2006Q2

REPORT INFORMATION
  Report Type: 
  Country: None (occurrence: None)
  Receive Date: 20060413
  Receipt Date: 20060413
  Transmission Date: 20061013
  Serious: Yes (Hospitalization, Other)
  Sender: FDA-Public Use
  Company Number: None

PATIENT
  Sex: Male
  Weight: 64 kg

DRUGS (9)
  1. ANTITHYMOCYTE GLOBULIN (THYMOGLOBULIN; ATG RABBIT) [Suspect]
     Indication: MYELODYSPLASTIC SYNDROME
     Dosage: 610 MG
     Dates: start: 20060224, end: 20060227
  2. BUSULFAN [Suspect]
     Dosage: 392 MG
     Dates: start: 20060224, end: 20060225
  3. FLUDARABINE PHOSPHATE [Suspect]
     Dosage: 100 MG
     Dates: start: 20060224, end: 20060225
  4. G-CSF (FILGRASTIM, AMGEN) [Suspect]
     Dosage: 2400 MCG
     Dates: start: 20060307, end: 20060314
  5. G-CSF (FILGRASTIM, AMGEN) [Suspect]
     Dosage: 2400 MCG
     Dates: start: 20060224
  6. METHOTREXATE [Suspect]
     Dosage: 33.2 MG
     Dates: start: 20060301, end: 20060311
  7. METHOTREXATE [Suspect]
     Dosage: 33.2 MG
     Dates: start: 20060224
  8. TACROLIMUS [Suspect]
     Dosage: 29 MG
     Dates: start: 20060227, end: 20060316
  9. TACROLIMUS [Suspect]
     Dosage: 29 MG
     Dates: start: 20060224

REACTIONS (7)
  - ASCITES [None]
  - BLOOD BILIRUBIN INCREASED [None]
  - HEPATIC ENCEPHALOPATHY [None]
  - HEPATORENAL SYNDROME [None]
  - HEPATOTOXICITY [None]
  - LIVER FUNCTION TEST ABNORMAL [None]
  - STEM CELL TRANSPLANT [None]
